FAERS Safety Report 6367982-2 (Version None)
Quarter: 2009Q3

REPORT INFORMATION
  Report Type: 
  Country: None (occurrence: None)
  Receive Date: 20090911
  Receipt Date: 20090903
  Transmission Date: 20100115
  Serious: Yes (Other)
  Sender: FDA-Public Use
  Company Number: 2009020682

PATIENT
  Sex: Female

DRUGS (1)
  1. IMMUNE GLOBULIN (HUMAN) [Suspect]
     Dosage: (10 G, 10 GRAMS WEEKLY SUBCUTANEOUS
     Route: 058
     Dates: start: 20070101

REACTIONS (3)
  - GENITAL HERPES [None]
  - HERPES SIMPLEX SEROLOGY POSITIVE [None]
  - SEXUAL RELATIONSHIP CHANGE [None]
